FAERS Safety Report 7314357-5 (Version None)
Quarter: 2011Q1

REPORT INFORMATION
  Report Type: 
  Country: None (occurrence: None)
  Receive Date: 20110225
  Receipt Date: 20100816
  Transmission Date: 20110831
  Serious: No
  Sender: FDA-Public Use
  Company Number: US-MYLANLABS-2010S1013737

PATIENT
  Age: 23 Year
  Sex: Female
  Weight: 48.08 kg

DRUGS (2)
  1. ORTHO TRI-CYCLEN [Concomitant]
     Indication: CONTRACEPTION
  2. AMNESTEEM [Suspect]
     Indication: ACNE
     Dates: start: 20100420, end: 20100727

REACTIONS (4)
  - HEADACHE [None]
  - ABDOMINAL PAIN [None]
  - EPISTAXIS [None]
  - NASAL DRYNESS [None]
